FAERS Safety Report 9398427 (Version 1)
Quarter: 2013Q3

REPORT INFORMATION
  Report Type: Spontaneous
  Country: US (occurrence: US)
  Receive Date: 20130712
  Receipt Date: 20130712
  Transmission Date: 20140515
  Serious: No
  Sender: FDA-Public Use
  Company Number: US-GLAXOSMITHKLINE-A1019608A

PATIENT
  Age: 66 Year
  Sex: Female

DRUGS (11)
  1. FLOVENT [Suspect]
     Indication: ASTHMA
     Dosage: 1PUFF TWICE PER DAY
     Route: 055
     Dates: start: 2011
  2. VENTOLIN [Suspect]
     Indication: ASTHMA
     Dosage: 2PUFF THREE TIMES PER DAY
     Route: 055
     Dates: start: 2010
  3. VENTOLIN HFA [Concomitant]
  4. NEBULIZER [Concomitant]
  5. LORAZEPAM [Concomitant]
  6. VERAPAMIL [Concomitant]
  7. CITALOPRAM [Concomitant]
  8. LOSARTAN [Concomitant]
  9. CLONIDINE [Concomitant]
  10. OMEPRAZOLE [Concomitant]
  11. PRAVASTATIN [Concomitant]

REACTIONS (2)
  - Wheezing [Unknown]
  - Drug ineffective [Unknown]
